FAERS Safety Report 5115966-4 (Version None)
Quarter: 2006Q3

REPORT INFORMATION
  Report Type: 
  Country: None (occurrence: None)
  Receive Date: 20060927
  Receipt Date: 20051223
  Transmission Date: 20061208
  Serious: No
  Sender: FDA-Public Use
  Company Number: US-BRISTOL-MYERS SQUIBB COMPANY-13228846

PATIENT
  Age: 31 Year
  Sex: Female
  Weight: 20 kg

DRUGS (1)
  1. DEFINITY [Suspect]
     Indication: ECHOCARDIOGRAM
     Route: 048
     Dates: start: 20051223, end: 20051223

REACTIONS (2)
  - BACK PAIN [None]
  - FEELING HOT [None]
